FAERS Safety Report 25590107 (Version 1)
Quarter: 2025Q3

REPORT INFORMATION
  Report Type: Spontaneous
  Country: US (occurrence: None)
  Receive Date: 20250721
  Receipt Date: 20250721
  Transmission Date: 20251021
  Serious: Yes (Disabling)
  Sender: FDA-CTU
  Company Number: None

PATIENT
  Age: 58 Year
  Sex: Female
  Weight: 56.25 kg

DRUGS (5)
  1. DEVICE [Suspect]
     Active Substance: DEVICE
     Indication: Dry eye
     Route: 050
     Dates: start: 20250703, end: 20250703
  2. REFRESH RELIEVA PF [Suspect]
     Active Substance: CARBOXYMETHYLCELLULOSE SODIUM\GLYCERIN
  3. WATER [Suspect]
     Active Substance: WATER
  4. Artificial Tears [Concomitant]
  5. Contact dry eye solution [Concomitant]

REACTIONS (3)
  - Wrong product administered [None]
  - Corneal abrasion [None]
  - Product packaging confusion [None]

NARRATIVE: CASE EVENT DATE: 20250703
